FAERS Safety Report 9883763 (Version 2)
Quarter: 2014Q2

REPORT INFORMATION
  Report Type: Spontaneous
  Country: CA (occurrence: CA)
  Receive Date: 20140210
  Receipt Date: 20140502
  Transmission Date: 20141212
  Serious: Yes (Other)
  Sender: FDA-Public Use
  Company Number: CA-ELI_LILLY_AND_COMPANY-CA201401011439

PATIENT
  Sex: Female

DRUGS (2)
  1. CYMBALTA [Suspect]
     Indication: OSTEOARTHRITIS
     Dosage: 90 MG, QD
     Route: 048
  2. CYMBALTA [Suspect]
     Dosage: 120 MG, QD
     Route: 048
     Dates: start: 20120505

REACTIONS (1)
  - Hepatic function abnormal [Recovered/Resolved]
